FAERS Safety Report 7739913-1 (Version None)
Quarter: 2011Q3

REPORT INFORMATION
  Report Type: 
  Country: None (occurrence: None)
  Receive Date: 20110909
  Receipt Date: 20110905
  Transmission Date: 20111222
  Serious: Yes (Other)
  Sender: FDA-Public Use
  Company Number: PHHY2011AU79643

PATIENT
  Sex: Female

DRUGS (4)
  1. LAMOTRIGINE [Concomitant]
  2. CLOZAPINE [Suspect]
     Dosage: UNK UKN, UNK
  3. ESCITALOPRAM [Concomitant]
     Dosage: UNK UKN, UNK
     Dates: start: 20110812
  4. CLOZAPINE [Suspect]
     Dosage: ONCE AT NIGHT

REACTIONS (4)
  - HYPERTHYROIDISM [None]
  - TIC [None]
  - ANTIPSYCHOTIC DRUG LEVEL INCREASED [None]
  - MYOCLONUS [None]
